FAERS Safety Report 6162606-1 (Version None)
Quarter: 2009Q2

REPORT INFORMATION
  Report Type: 
  Country: None (occurrence: None)
  Receive Date: 20090421
  Receipt Date: 20050726
  Transmission Date: 20091009
  Serious: No
  Sender: FDA-Public Use
  Company Number: US-SOLVAY-00205002404

PATIENT
  Age: 413 Month
  Sex: Female
  Weight: 61 kg

DRUGS (1)
  1. ANDROGEL [Suspect]
     Indication: ACCIDENTAL EXPOSURE
     Dosage: DAILY DOSE: 10 GRAM(S)
     Route: 062
     Dates: start: 20030101

REACTIONS (2)
  - ACNE [None]
  - BREAST TENDERNESS [None]
